FAERS Safety Report 14986266 (Version 2)
Quarter: 2018Q3

REPORT INFORMATION
  Report Type: Spontaneous
  Country: US (occurrence: US)
  Receive Date: 20180607
  Receipt Date: 20180710
  Transmission Date: 20181010
  Serious: No
  Sender: FDA-Public Use
  Company Number: US-ACTELION-A-NJ2018-173343

PATIENT
  Age: 35 Year
  Sex: Female

DRUGS (2)
  1. OPSUMIT [Suspect]
     Active Substance: MACITENTAN
     Indication: PULMONARY ARTERIAL HYPERTENSION
     Dosage: 10 MG, QD
     Route: 048
     Dates: start: 20150214
  2. UPTRAVI [Suspect]
     Active Substance: SELEXIPAG
     Indication: PULMONARY ARTERIAL HYPERTENSION
     Dosage: 1000 MCG, BID
     Route: 048
     Dates: start: 20180504

REACTIONS (8)
  - Nausea [Unknown]
  - Pain in jaw [Unknown]
  - Myalgia [Unknown]
  - Diarrhoea [Unknown]
  - Muscular weakness [Unknown]
  - Headache [Unknown]
  - Pain in extremity [Unknown]
  - Flushing [Unknown]

NARRATIVE: CASE EVENT DATE: 20180628
